FAERS Safety Report 5803751-7 (Version None)
Quarter: 2008Q3

REPORT INFORMATION
  Report Type: 
  Country: None (occurrence: None)
  Receive Date: 20080708
  Receipt Date: 20080201
  Transmission Date: 20090109
  Serious: No
  Sender: FDA-Public Use
  Company Number: US-AMGEN-KDL263778

PATIENT
  Sex: Male

DRUGS (1)
  1. KINERET [Suspect]
     Indication: POLYCHONDRITIS
     Route: 058
     Dates: start: 20020423

REACTIONS (2)
  - RASH [None]
  - RASH MORBILLIFORM [None]
